FAERS Safety Report 16573368 (Version 2)
Quarter: 2019Q3

REPORT INFORMATION
  Report Type: Spontaneous
  Country: BR (occurrence: BR)
  Receive Date: 20190715
  Receipt Date: 20190723
  Transmission Date: 20191004
  Serious: Yes (Hospitalization, Other)
  Sender: FDA-Public Use
  Company Number: BR-GLAXOSMITHKLINE-BR2019AMR123630

PATIENT
  Sex: Male

DRUGS (1)
  1. NUCALA [Suspect]
     Active Substance: MEPOLIZUMAB
     Indication: EOSINOPHILIC GRANULOMATOSIS WITH POLYANGIITIS
     Dosage: 300 MG, Z, PER MONTH

REACTIONS (5)
  - Condition aggravated [Unknown]
  - Coma [Unknown]
  - Eosinophilic granulomatosis with polyangiitis [Unknown]
  - Vasculitis [Unknown]
  - Product use in unapproved indication [Unknown]
